FAERS Safety Report 7301105-8 (Version None)
Quarter: 2011Q1

REPORT INFORMATION
  Report Type: 
  Country: None (occurrence: None)
  Receive Date: 20110218
  Receipt Date: 20110211
  Transmission Date: 20110831
  Serious: Yes (Hospitalization)
  Sender: FDA-Public Use
  Company Number: US-BRISTOL-MYERS SQUIBB COMPANY-15548670

PATIENT
  Age: 65 Year
  Sex: Male
  Weight: 88 kg

DRUGS (6)
  1. LIPITOR [Concomitant]
  2. VICODIN [Concomitant]
     Dosage: VICODIN TUSS
  3. MAGIC MOUTHWASH [Concomitant]
  4. MULTI-VITAMIN [Concomitant]
  5. CISPLATIN [Suspect]
     Indication: NON-SMALL CELL LUNG CANCER STAGE III
     Dosage: DAY 1 AND 8 INT ON 31DEC11,24JAN11 RECENT DOSE:24JAN11 8NOV10-24JAN11(78D)
     Route: 042
     Dates: start: 20101108
  6. ETOPOSIDE [Suspect]
     Indication: NON-SMALL CELL LUNG CANCER STAGE III
     Dosage: QDAY1-5 RECENT DOSE:28JAN11
     Route: 042
     Dates: start: 20101108, end: 20110128

REACTIONS (1)
  - CHEST PAIN [None]
